FAERS Safety Report 12790510 (Version 9)
Quarter: 2017Q4

REPORT INFORMATION
  Report Type: Spontaneous
  Country: US (occurrence: US)
  Receive Date: 20160929
  Receipt Date: 20171214
  Transmission Date: 20180320
  Serious: Yes (Hospitalization)
  Sender: FDA-Public Use
  Company Number: US-ACTELION-A-US2016-142508

PATIENT
  Age: 38 Year
  Sex: Female
  Weight: 79.37 kg

DRUGS (5)
  1. TRACLEER [Suspect]
     Active Substance: BOSENTAN
     Indication: PULMONARY ARTERIAL HYPERTENSION
     Dosage: 125 MG, BID
     Route: 048
     Dates: start: 20100112
  2. DILTIAZEM. [Concomitant]
     Active Substance: DILTIAZEM
  3. REMODULIN [Concomitant]
     Active Substance: TREPROSTINIL
  4. WARFARIN [Concomitant]
     Active Substance: WARFARIN
  5. ADCIRCA [Concomitant]
     Active Substance: TADALAFIL

REACTIONS (20)
  - Infusion site pain [Unknown]
  - Infusion site discharge [Unknown]
  - Pain [Unknown]
  - Dizziness [Unknown]
  - Drug dose omission [Unknown]
  - Dehydration [Unknown]
  - Vomiting [Unknown]
  - Infusion site swelling [Unknown]
  - Abdominal discomfort [Unknown]
  - Infusion site infection [Unknown]
  - Blood potassium decreased [Unknown]
  - Diarrhoea [Unknown]
  - Infusion site mass [Unknown]
  - Gastric disorder [Unknown]
  - Cyst removal [Unknown]
  - Cough [Unknown]
  - Malaise [Unknown]
  - Nausea [Unknown]
  - Infusion site erythema [Unknown]
  - Abdominal pain upper [Unknown]
